FAERS Safety Report 19697348 (Version 1)
Quarter: 2021Q3

REPORT INFORMATION
  Report Type: Spontaneous
  Country: US (occurrence: US)
  Receive Date: 20210813
  Receipt Date: 20210813
  Transmission Date: 20211014
  Serious: No
  Sender: FDA-Public Use
  Company Number: US-JNJFOC-20210819073

PATIENT
  Age: 18 Year
  Sex: Female

DRUGS (2)
  1. JANSSEN COVID?19 VACCINE [Suspect]
     Active Substance: AD26.COV2.S
     Indication: IMMUNISATION
     Dosage: VACCINATED ON LEFT ARM
     Route: 065
     Dates: start: 20210809, end: 20210809
  2. TYLENOL [Suspect]
     Active Substance: ACETAMINOPHEN
     Indication: HEADACHE
     Dosage: TOOK 2 TABLETS
     Route: 048
     Dates: start: 20210810

REACTIONS (8)
  - Cough [Not Recovered/Not Resolved]
  - Lip swelling [Recovering/Resolving]
  - Headache [Not Recovered/Not Resolved]
  - Eye swelling [Recovering/Resolving]
  - Throat irritation [Not Recovered/Not Resolved]
  - Mouth swelling [Recovering/Resolving]
  - Hypersensitivity [Not Recovered/Not Resolved]
  - Pruritus [Not Recovered/Not Resolved]

NARRATIVE: CASE EVENT DATE: 20210810
